FAERS Safety Report 10939026 (Version 2)
Quarter: 2015Q2

REPORT INFORMATION
  Report Type: Spontaneous
  Country: US (occurrence: US)
  Receive Date: 20150321
  Receipt Date: 20150525
  Transmission Date: 20150821
  Serious: No
  Sender: FDA-Public Use
  Company Number: US-JNJFOC-20110512929

PATIENT
  Age: 43 Year
  Sex: Female
  Weight: 66.68 kg

DRUGS (10)
  1. STELARA [Suspect]
     Active Substance: USTEKINUMAB
     Indication: PSORIASIS
     Route: 058
     Dates: start: 20110427, end: 20120221
  2. NEXIUM [Concomitant]
     Active Substance: ESOMEPRAZOLE MAGNESIUM
     Route: 065
  3. ENBREL [Concomitant]
     Active Substance: ETANERCEPT
     Dosage: SINCE 2007/ 2008
     Route: 058
  4. HUMIRA [Concomitant]
     Active Substance: ADALIMUMAB
     Dosage: SINCE 2007/ 2008
     Route: 058
  5. FLONASE [Concomitant]
     Active Substance: FLUTICASONE PROPIONATE
     Route: 065
  6. CELEXA [Concomitant]
     Active Substance: CITALOPRAM HYDROBROMIDE
     Indication: DEPRESSION
     Route: 065
  7. ALLEGRA [Concomitant]
     Active Substance: FEXOFENADINE HYDROCHLORIDE
     Route: 065
  8. METHOTREXATE [Concomitant]
     Active Substance: METHOTREXATE
     Dosage: SINCE 2007/ 2008
     Route: 048
  9. TRAZADOL [Concomitant]
     Route: 065
  10. RAPTIVA [Concomitant]
     Active Substance: EFALIZUMAB
     Dosage: SINCE 2007/ 2008
     Route: 065

REACTIONS (4)
  - Cardiac flutter [Recovered/Resolved]
  - Heart rate irregular [Recovered/Resolved]
  - Ventricular extrasystoles [Recovered/Resolved]
  - Drug ineffective [Unknown]

NARRATIVE: CASE EVENT DATE: 20110526
